FAERS Safety Report 6693416-4 (Version None)
Quarter: 2010Q2

REPORT INFORMATION
  Report Type: 
  Country: None (occurrence: None)
  Receive Date: 20100423
  Receipt Date: 20100412
  Transmission Date: 20101027
  Serious: Yes (Other)
  Sender: FDA-Public Use
  Company Number: US-ASTRAZENECA-2009UW15586

PATIENT
  Age: 564 Month
  Sex: Female
  Weight: 122.5 kg

DRUGS (16)
  1. SEROQUEL [Suspect]
     Route: 048
     Dates: start: 20041020
  2. ATIVAN [Concomitant]
     Dosage: 0.5MG , TAKE 1 AND 1/2 -1 AT BEDTIME
     Route: 048
     Dates: start: 20090123
  3. ABILIFY [Concomitant]
     Dates: start: 20090123
  4. PROZAC [Concomitant]
     Dosage: 10MG -60MG
     Route: 048
     Dates: start: 20090123
  5. FLEXERIL [Concomitant]
     Route: 048
     Dates: start: 20090123
  6. AMITRIPTYLINE [Concomitant]
     Route: 048
     Dates: start: 20090123
  7. LASIX [Concomitant]
     Dates: start: 20090123
  8. DIOVAN [Concomitant]
     Dates: start: 20041020
  9. ASPIRIN [Concomitant]
     Route: 048
     Dates: start: 20041115
  10. LISINOPRIL [Concomitant]
     Route: 048
     Dates: start: 20041020
  11. PLAVIX [Concomitant]
     Route: 048
     Dates: start: 20090123
  12. ZOCOR [Concomitant]
     Route: 048
     Dates: start: 20090123
  13. HYDROCHLOROT [Concomitant]
     Dates: start: 20041027
  14. FLUOXETINE [Concomitant]
     Dates: start: 20041027
  15. DEPAKOTE [Concomitant]
     Dates: start: 20041103
  16. DIAZEPAM [Concomitant]
     Dates: start: 20041110

REACTIONS (2)
  - NEUROPATHY PERIPHERAL [None]
  - TYPE 2 DIABETES MELLITUS [None]
